FAERS Safety Report 4897863-2 (Version None)
Quarter: 2006Q1

REPORT INFORMATION
  Report Type: 
  Country: None (occurrence: None)
  Receive Date: 20060201
  Receipt Date: 20060119
  Transmission Date: 20060701
  Serious: Yes (Life-Threatening)
  Sender: FDA-Public Use
  Company Number: FI-GLAXOSMITHKLINE-B0407483A

PATIENT
  Age: 47 Year
  Sex: Female

DRUGS (1)
  1. PANADOL HOT [Suspect]
     Indication: NASOPHARYNGITIS
     Dosage: 500MG SINGLE DOSE
     Route: 048
     Dates: start: 20060107, end: 20060107

REACTIONS (4)
  - DYSPNOEA [None]
  - HYPERSENSITIVITY [None]
  - SWELLING FACE [None]
  - SWOLLEN TONGUE [None]
